FAERS Safety Report 14826440 (Version 1)
Quarter: 2018Q2

REPORT INFORMATION
  Report Type: Spontaneous
  Country: US (occurrence: US)
  Receive Date: 20180404
  Receipt Date: 20180404
  Transmission Date: 20180711
  Serious: No
  Sender: FDA-Public Use
  Company Number: None

PATIENT
  Age: 31 Year
  Sex: Female
  Weight: 56.25 kg

DRUGS (2)
  1. VITAMIN C SUPPLEMENT [Concomitant]
  2. DOXYCYCLINE HYCLATE. [Suspect]
     Active Substance: DOXYCYCLINE HYCLATE
     Indication: PERIODONTAL DISEASE
     Dosage: ?          QUANTITY:1 CAPSULE(S);?
     Route: 048
     Dates: start: 20180331, end: 20180404

REACTIONS (3)
  - Suicidal ideation [None]
  - Affective disorder [None]
  - Depression [None]

NARRATIVE: CASE EVENT DATE: 20180403
